FAERS Safety Report 8603141-8 (Version None)
Quarter: 2012Q3

REPORT INFORMATION
  Report Type: 
  Country: None (occurrence: None)
  Receive Date: 20120817
  Receipt Date: 20120815
  Transmission Date: 20120928
  Serious: Yes (Death)
  Sender: FDA-Public Use
  Company Number: PHHY2012GB070565

PATIENT
  Sex: Male

DRUGS (3)
  1. FLUOXETINE HCL [Suspect]
     Dosage: 30 MG, UNK
     Route: 048
  2. SEROQUEL [Suspect]
  3. DEPAKOTE [Suspect]
     Dosage: 1500 MG, UNK
     Route: 048

REACTIONS (2)
  - CHEST PAIN [None]
  - SUDDEN CARDIAC DEATH [None]
